FAERS Safety Report 26051316 (Version 1)
Quarter: 2025Q4

REPORT INFORMATION
  Report Type: Spontaneous
  Country: US (occurrence: US)
  Receive Date: 20251117
  Receipt Date: 20251117
  Transmission Date: 20260117
  Serious: Yes (Other)
  Sender: REVANCE THERAPEUTICS
  Company Number: US-REVANCE THERAPEUTICS INC.-US-REV-2025-000744

PATIENT

DRUGS (1)
  1. DAXIBOTULINUMTOXIN A-LANM [Suspect]
     Active Substance: DAXIBOTULINUMTOXIN A-LANM
     Indication: Skin wrinkling
     Dosage: 20 UNITS IN FOREHEAD, 14 UNITS IN GLABELLA AND 12 UNITS (6 UNITS EACH SIDE) IN LATERAL CANTHAL LINES
     Route: 065

REACTIONS (5)
  - Neoplasm malignant [Unknown]
  - Swelling face [Unknown]
  - Sinusitis [Unknown]
  - Underdose [Unknown]
  - Off label use [Unknown]
